FAERS Safety Report 10265748 (Version 2)
Quarter: 2014Q4

REPORT INFORMATION
  Report Type: Report from Study
  Country: BR (occurrence: BR)
  Receive Date: 20140627
  Receipt Date: 20141111
  Transmission Date: 20150528
  Serious: Yes (Disabling)
  Sender: FDA-Public Use
  Company Number: BR-BRISTOL-MYERS SQUIBB COMPANY-20751889

PATIENT
  Age: 12 Year
  Sex: Female

DRUGS (1)
  1. ORENCIA [Suspect]
     Active Substance: ABATACEPT
     Indication: RHEUMATOID ARTHRITIS
     Dosage: LAST INFUSION ON 18-AUG-2014

REACTIONS (2)
  - Ocular hyperaemia [Unknown]
  - Visual impairment [Recovered/Resolved]
